FAERS Safety Report 6896996-9 (Version None)
Quarter: 2010Q3

REPORT INFORMATION
  Report Type: 
  Country: None (occurrence: None)
  Receive Date: 20100729
  Receipt Date: 20100713
  Transmission Date: 20110219
  Serious: Yes (Other)
  Sender: FDA-Public Use
  Company Number: TIF2007A00073

PATIENT
  Age: 67 Year
  Sex: Male

DRUGS (6)
  1. PIOGLITAZONE HCL [Suspect]
     Indication: TYPE 2 DIABETES MELLITUS
     Dosage: 45 MG (15 MG,3 IN 1 D) ORAL
     Dates: start: 20070408, end: 20070603
  2. METFORMIN HCL [Suspect]
     Indication: TYPE 2 DIABETES MELLITUS
     Dosage: 3 GM (MG, 3 IN 1D) ORAL;  2  GM (1 MG, 2 IN 1D) ORAL
     Route: 048
     Dates: start: 20070408, end: 20070603
  3. METFORMIN HCL [Suspect]
     Indication: TYPE 2 DIABETES MELLITUS
     Dosage: 3 GM (MG, 3 IN 1D) ORAL;  2  GM (1 MG, 2 IN 1D) ORAL
     Route: 048
     Dates: start: 20070604
  4. SIMVASTIN (SIMVASTATIN) [Concomitant]
  5. ASPIRIN [Concomitant]
  6. RAMIPRIL [Concomitant]

REACTIONS (9)
  - ABDOMINAL PAIN [None]
  - ALBUMINURIA [None]
  - ANAEMIA [None]
  - DYSPEPSIA [None]
  - ERUCTATION [None]
  - FLATULENCE [None]
  - INSOMNIA [None]
  - MALAISE [None]
  - NAUSEA [None]
